FAERS Safety Report 14639859 (Version 1)
Quarter: 2018Q1

REPORT INFORMATION
  Report Type: Other
  Country: GB (occurrence: GB)
  Receive Date: 20180315
  Receipt Date: 20180315
  Transmission Date: 20180509
  Serious: Yes (Other)
  Sender: FDA-Public Use
  Company Number: GB-GLENMARK PHARMACEUTICALS-2018GMK033309

PATIENT

DRUGS (1)
  1. IMIQUIMOD. [Suspect]
     Active Substance: IMIQUIMOD
     Indication: BASAL CELL CARCINOMA
     Dosage: 5 DF, UNK
     Route: 061
     Dates: start: 20160915, end: 20170112

REACTIONS (1)
  - Autoimmune hepatitis [Not Recovered/Not Resolved]

NARRATIVE: CASE EVENT DATE: 20161101
